FAERS Safety Report 23228266 (Version 1)
Quarter: 2023Q4

REPORT INFORMATION
  Report Type: Report from Study
  Country: US (occurrence: US)
  Receive Date: 20231125
  Receipt Date: 20231125
  Transmission Date: 20240110
  Serious: Yes (Other)
  Sender: FDA-Public Use
  Company Number: US-002147023-NVSC2023US247991

PATIENT
  Age: 78 Year
  Sex: Female

DRUGS (1)
  1. LEQVIO [Suspect]
     Active Substance: INCLISIRAN SODIUM
     Indication: Product used for unknown indication
     Dosage: 284 MG (INITIAL DOSE, THEN 3 MONTHS AND THEN EVERY 6 MONTHS THEREAFTER))
     Route: 065
     Dates: start: 20230821

REACTIONS (5)
  - Pruritus genital [Not Recovered/Not Resolved]
  - Staphylococcal infection [Unknown]
  - Pain [Not Recovered/Not Resolved]
  - Burning sensation [Not Recovered/Not Resolved]
  - Urinary tract infection [Unknown]

NARRATIVE: CASE EVENT DATE: 20230821
